FAERS Safety Report 7281675-9 (Version None)
Quarter: 2011Q1

REPORT INFORMATION
  Report Type: 
  Country: None (occurrence: None)
  Receive Date: 20110128
  Receipt Date: 20110120
  Transmission Date: 20110831
  Serious: Yes (Death)
  Sender: FDA-Public Use
  Company Number: 1000018340

PATIENT
  Age: 37 Year
  Sex: Female

DRUGS (14)
  1. FENTANYL [Suspect]
  2. ETHANOL (ETHANOL) [Suspect]
  3. GEMFIBROZIL [Suspect]
  4. TOPIRAMATE [Suspect]
  5. RANITIDINE [Suspect]
  6. CLONAZEPAM [Suspect]
  7. DULOXETINE (DULOXETINE) [Suspect]
  8. LEVOTHROID [Suspect]
  9. PREDNISONE TAB [Suspect]
  10. SIMVASTATIN [Suspect]
  11. ARIPIPRAZOLE [Suspect]
  12. OXCARBAZEPINE [Suspect]
  13. METFORMIN (METFORMIN) [Suspect]
  14. BUPROPION (BUPROPRION) [Suspect]

REACTIONS (3)
  - CARDIO-RESPIRATORY ARREST [None]
  - COMPLETED SUICIDE [None]
  - MULTIPLE DRUG OVERDOSE INTENTIONAL [None]
